FAERS Safety Report 14964091 (Version 1)
Quarter: 2018Q2

REPORT INFORMATION
  Report Type: Spontaneous
  Country: US (occurrence: US)
  Receive Date: 20180601
  Receipt Date: 20180601
  Transmission Date: 20180711
  Serious: Yes (Other)
  Sender: FDA-Public Use
  Company Number: US-BAYER-2018-100533

PATIENT
  Age: 53 Year
  Sex: Female

DRUGS (2)
  1. CIPRO [Suspect]
     Active Substance: CIPROFLOXACIN HYDROCHLORIDE
     Indication: BRONCHITIS
     Dosage: 500 MG, TWICE A DAY FOR SEVEN DAYS
     Route: 048
     Dates: start: 20161025
  2. CIPRO [Suspect]
     Active Substance: CIPROFLOXACIN HYDROCHLORIDE
     Indication: BRONCHITIS
     Dosage: 500 MG, TWICE A DAY FOR TEN DAYS
     Route: 048
     Dates: start: 2015

REACTIONS (4)
  - Tendonitis [None]
  - Tenderness [None]
  - Arthralgia [None]
  - Adverse drug reaction [Not Recovered/Not Resolved]

NARRATIVE: CASE EVENT DATE: 201701
